FAERS Safety Report 4638155-6 (Version None)
Quarter: 2005Q2

REPORT INFORMATION
  Report Type: 
  Country: None (occurrence: None)
  Receive Date: 20050418
  Receipt Date: 20050407
  Transmission Date: 20051028
  Serious: Yes (Other)
  Sender: FDA-Public Use
  Company Number: PHEH2005US04108

PATIENT
  Age: 60 Year
  Sex: Male

DRUGS (2)
  1. LOTREL [Suspect]
     Indication: HYPERTENSION
     Dosage: UNK, QD
     Route: 048
     Dates: start: 20030101
  2. HYDROCHLOROTHIAZIDE [Concomitant]
     Indication: FLUID RETENTION
     Dosage: 12.5 MG, QD
     Dates: start: 20040801

REACTIONS (5)
  - CARPAL TUNNEL SYNDROME [None]
  - HYPOAESTHESIA [None]
  - PARAESTHESIA [None]
  - PERICARDIAL EFFUSION [None]
  - VIRAL PERICARDITIS [None]
